FAERS Safety Report 14085092 (Version 2)
Quarter: 2018Q4

REPORT INFORMATION
  Report Type: Report from Study
  Country: LV (occurrence: LV)
  Receive Date: 20171013
  Receipt Date: 20181128
  Transmission Date: 20190204
  Serious: Yes (Other)
  Sender: FDA-Public Use
  Company Number: LV-ROCHE-2008777

PATIENT
  Age: 48 Year
  Sex: Male

DRUGS (3)
  1. ALTEPLASE. [Suspect]
     Active Substance: ALTEPLASE
     Indication: ISCHAEMIC STROKE
     Dosage: OVER 5-10 MIN
     Route: 013
  2. ALTEPLASE. [Suspect]
     Active Substance: ALTEPLASE
     Indication: ISCHAEMIC STROKE
     Dosage: 50 MG OF ALTEPLASE WAS DISSOLVED IN 50 ML OF STERILE WATER (DOSE RATE, 0.57-0.70 MG/KG) AND OF THIS
     Route: 042
  3. HEPARIN [Suspect]
     Active Substance: HEPARIN SODIUM
     Indication: ISCHAEMIC STROKE
     Dosage: 5000 U
     Route: 065

REACTIONS (1)
  - Haemorrhagic transformation stroke [Unknown]
